FAERS Safety Report 9337330 (Version 1)
Quarter: 2013Q2

REPORT INFORMATION
  Report Type: Spontaneous
  Country: CA (occurrence: CA)
  Receive Date: 20130607
  Receipt Date: 20130607
  Transmission Date: 20140414
  Serious: Yes (Death)
  Sender: FDA-Public Use
  Company Number: CA-GLAXOSMITHKLINE-A1024810A

PATIENT
  Age: 48 Year
  Sex: Female

DRUGS (3)
  1. VOTRIENT [Suspect]
     Indication: SARCOMA
     Dosage: 800MG PER DAY
     Route: 048
     Dates: start: 20130221
  2. SLOW POTASSIUM [Concomitant]
  3. MAGNESIUM [Concomitant]

REACTIONS (1)
  - Death [Fatal]
